FAERS Safety Report 23034545 (Version 1)
Quarter: 2023Q4

REPORT INFORMATION
  Report Type: Spontaneous
  Country: GB (occurrence: GB)
  Receive Date: 20231005
  Receipt Date: 20231005
  Transmission Date: 20240109
  Serious: Yes (Other)
  Sender: FDA-Public Use
  Company Number: None

PATIENT
  Age: 61 Year
  Sex: Female
  Weight: 53 kg

DRUGS (4)
  1. ESTRADIOL [Suspect]
     Active Substance: ESTRADIOL
     Indication: Product used for unknown indication
     Route: 065
  2. UTROGESTAN [Suspect]
     Active Substance: PROGESTERONE
     Indication: Product used for unknown indication
     Route: 065
  3. UTROGESTAN [Suspect]
     Active Substance: PROGESTERONE
     Indication: Menopause
  4. UTROGESTAN [Concomitant]
     Active Substance: PROGESTERONE
     Indication: Menopause

REACTIONS (1)
  - Tremor [Recovered/Resolved]
